APPROVED DRUG PRODUCT: MEPROBAMATE
Active Ingredient: MEPROBAMATE
Strength: 200MG
Dosage Form/Route: TABLET;ORAL
Application: A090122 | Product #001 | TE Code: AA
Applicant: ALEMBIC PHARMACEUTICALS LTD
Approved: Feb 18, 2009 | RLD: No | RS: Yes | Type: RX